FAERS Safety Report 12431684 (Version 4)
Quarter: 2025Q4

REPORT INFORMATION
  Report Type: Spontaneous
  Country: EU (occurrence: EU)
  Receive Date: 20160603
  Receipt Date: 20251226
  Transmission Date: 20260118
  Serious: Yes (Life-Threatening)
  Sender: AUROBINDO
  Company Number: EU-AUROBINDO-AUR-APL-2016-06519

PATIENT
  Age: 77 Year
  Sex: Female
  Weight: 94 kg

DRUGS (19)
  1. ESCITALOPRAM [Suspect]
     Active Substance: ESCITALOPRAM OXALATE
     Indication: Mixed anxiety and depressive disorder
     Dosage: 10 MILLIGRAM, ONCE A DAY
     Route: 061
     Dates: end: 20160418
  2. ALLOPURINOL [Suspect]
     Active Substance: ALLOPURINOL
     Indication: Product used for unknown indication
     Dosage: 100 MILLIGRAM, ONCE A DAY
     Route: 061
     Dates: start: 20160326, end: 20160418
  3. NEBIVOLOL HYDROCHLORIDE [Suspect]
     Active Substance: NEBIVOLOL HYDROCHLORIDE
     Indication: Hypertension
     Dosage: 2.5 MILLIGRAM, ONCE A DAY
     Route: 061
     Dates: end: 20160418
  4. PRAVASTATIN [Suspect]
     Active Substance: PRAVASTATIN
     Indication: Dyslipidaemia
     Dosage: 20 MG, ONCE A DAY
     Route: 061
     Dates: start: 20160326, end: 20160418
  5. HYDROCHLOROTHIAZIDE\IRBESARTAN [Suspect]
     Active Substance: HYDROCHLOROTHIAZIDE\IRBESARTAN
     Indication: Hypertension
     Dosage: UNK, ONCE A DAY
     Route: 061
     Dates: start: 20160326, end: 20160418
  6. ESCITALOPRAM [Suspect]
     Active Substance: ESCITALOPRAM OXALATE
     Indication: Product used for unknown indication
     Dosage: UNK
     Route: 061
  7. PRAVASTATIN [Suspect]
     Active Substance: PRAVASTATIN
     Indication: Product used for unknown indication
     Dosage: UNK
     Route: 061
  8. RIFAMPIN [Suspect]
     Active Substance: RIFAMPIN
     Indication: Medical device site joint infection
     Dosage: 500 MG, 3 TIMES A DAY
     Dates: start: 20160411, end: 20160418
  9. RIFAMPIN [Suspect]
     Active Substance: RIFAMPIN
     Dosage: 1000 MILLIGRAM, TOTAL
     Dates: start: 20160329, end: 20160329
  10. CUBICIN [Suspect]
     Active Substance: DAPTOMYCIN
     Indication: Staphylococcal infection
     Dosage: 1000 MILLIGRAM, ONCE A DAY
     Dates: start: 20160329, end: 20160418
  11. CUBICIN [Suspect]
     Active Substance: DAPTOMYCIN
     Dosage: 1000 MILLIGRAM, EVERY 2 WEEKS
     Dates: start: 20160329, end: 20160418
  12. RIFAMPIN [Suspect]
     Active Substance: RIFAMPIN
     Indication: Product used for unknown indication
     Dosage: 500 MG, 3 TIMES A DAY
     Dates: start: 20160411, end: 20160418
  13. RIFAMPIN [Suspect]
     Active Substance: RIFAMPIN
     Indication: Medical device site joint infection
     Dosage: 600 MG, TWO TIMES A DAY
     Dates: start: 20160408, end: 20160418
  14. CALCIPARINE [Suspect]
     Active Substance: HEPARIN CALCIUM
     Indication: Thrombosis prophylaxis
     Dosage: UNK
  15. CALCIPARINE [Suspect]
     Active Substance: HEPARIN CALCIUM
     Dosage: 0.2 MILLILITER, TWO TIMES A DAY
     Dates: start: 20160326, end: 20160418
  16. OXAZEPAM [Concomitant]
     Active Substance: OXAZEPAM
     Indication: Product used for unknown indication
     Dosage: 10 MILLIGRAM, ONCE A DAY
     Route: 065
  17. VOLTARENE [Concomitant]
     Indication: Product used for unknown indication
     Dosage: 75 MILLIGRAM, ONCE A DAY
     Route: 065
  18. ESOMEPRAZOLE [Concomitant]
     Active Substance: ESOMEPRAZOLE
     Indication: Product used for unknown indication
     Dosage: 20 MILLIGRAM, ONCE A DAY
     Route: 065
  19. SIMVASTATIN [Concomitant]
     Active Substance: SIMVASTATIN
     Indication: Product used for unknown indication
     Dosage: 20 MILLIGRAM, ONCE A DAY
     Route: 065

REACTIONS (1)
  - Interstitial lung disease [Recovering/Resolving]

NARRATIVE: CASE EVENT DATE: 20160401
